FAERS Safety Report 17518206 (Version 1)
Quarter: 2020Q1

REPORT INFORMATION
  Report Type: Spontaneous
  Country: NL (occurrence: NL)
  Receive Date: 20200309
  Receipt Date: 20200309
  Transmission Date: 20200409
  Serious: Yes (Other)
  Sender: FDA-Public Use
  Company Number: NL-ASTRAZENECA-2020SE35071

PATIENT
  Age: 72 Year
  Sex: Male

DRUGS (9)
  1. FENTANYL. [Suspect]
     Active Substance: FENTANYL
     Indication: CANCER PAIN
     Dosage: 50 MCG/H EVERY 72 HOURS UNKNOWN
     Route: 062
  2. CLONAZEPAM. [Concomitant]
     Active Substance: CLONAZEPAM
     Indication: CANCER PAIN
     Dosage: 0.5 MILLIGRAM DAILY, AT NIGHT
     Route: 065
  3. NALOXEGOL [Suspect]
     Active Substance: NALOXEGOL
     Indication: CONSTIPATION
     Route: 048
  4. FENTANYL. [Suspect]
     Active Substance: FENTANYL
     Indication: BREAKTHROUGH PAIN
     Dosage: 50 MCG/H EVERY 72 HOURS UNKNOWN
     Route: 062
  5. NALOXEGOL [Suspect]
     Active Substance: NALOXEGOL
     Indication: CONSTIPATION
     Route: 048
  6. NAPROXEN. [Concomitant]
     Active Substance: NAPROXEN
     Indication: CANCER PAIN
     Route: 065
  7. FENTANYL. [Suspect]
     Active Substance: FENTANYL
     Indication: BREAKTHROUGH PAIN
     Dosage: 100.0UG UNKNOWN
     Route: 045
  8. FENTANYL. [Suspect]
     Active Substance: FENTANYL
     Indication: CANCER PAIN
     Dosage: 100.0UG UNKNOWN
     Route: 045
  9. PARACETAMOL [Concomitant]
     Active Substance: ACETAMINOPHEN
     Indication: CANCER PAIN
     Route: 065

REACTIONS (2)
  - Constipation [Recovering/Resolving]
  - Abdominal pain [Unknown]
